FAERS Safety Report 6290035-9 (Version None)
Quarter: 2009Q3

REPORT INFORMATION
  Report Type: 
  Country: None (occurrence: None)
  Receive Date: 20090730
  Receipt Date: 20070627
  Transmission Date: 20100115
  Serious: Yes (Other)
  Sender: FDA-Public Use
  Company Number: US-ASTRAZENECA-2006UW11333

PATIENT
  Age: 17820 Day
  Sex: Male
  Weight: 136.1 kg

DRUGS (10)
  1. SEROQUEL [Suspect]
     Indication: DEPRESSION
     Route: 048
     Dates: start: 19990101, end: 20060401
  2. SEROQUEL [Suspect]
     Indication: BIPOLAR DISORDER
     Route: 048
     Dates: start: 19990101, end: 20060401
  3. SEROQUEL [Suspect]
     Dosage: 400-800 MG
     Route: 048
     Dates: start: 20021014
  4. SEROQUEL [Suspect]
     Dosage: 400-800 MG
     Route: 048
     Dates: start: 20021014
  5. ZYPREXA [Suspect]
  6. ABILIFY [Concomitant]
  7. DEPAKOTE [Concomitant]
     Dosage: 1500-2500 MG AT BED TIME
     Route: 048
     Dates: start: 20000703
  8. NEURONTIN [Concomitant]
     Dosage: 100-1600 MG PER DAY
     Route: 048
     Dates: start: 20000919
  9. VISTARIL [Concomitant]
     Dosage: 25-75 MG
     Route: 065
     Dates: start: 20020114
  10. CELEXA [Concomitant]
     Dosage: 20-50 MG AT BED TIME
     Route: 048
     Dates: start: 20020708

REACTIONS (7)
  - DIABETES MELLITUS [None]
  - DIABETES MELLITUS INADEQUATE CONTROL [None]
  - DIABETIC NEPHROPATHY [None]
  - DIABETIC NEUROPATHY [None]
  - METABOLIC SYNDROME [None]
  - TYPE 1 DIABETES MELLITUS [None]
  - TYPE 2 DIABETES MELLITUS [None]
